FAERS Safety Report 9621614 (Version 2)
Quarter: 2013Q4

REPORT INFORMATION
  Report Type: Spontaneous
  Country: AU (occurrence: AU)
  Receive Date: 20131015
  Receipt Date: 20131025
  Transmission Date: 20140711
  Serious: Yes (Other)
  Sender: FDA-Public Use
  Company Number: AU-009507513-1310AUS004683

PATIENT
  Age: 37 Year
  Sex: Female
  Weight: 90 kg

DRUGS (6)
  1. CELESTONE CHRONODOSE [Suspect]
     Indication: PLANTAR FASCIITIS
     Dosage: UNK UNK, PRN: INTERMITTENT INJECTION
     Dates: start: 20130726
  2. CELESTONE CHRONODOSE [Suspect]
     Dosage: UNK, ONCE
     Dates: start: 20130830
  3. CELESTONE CHRONODOSE [Suspect]
     Dosage: UNK
     Dates: start: 20131003
  4. CIPRAMIL [Concomitant]
     Dosage: UNK
     Route: 048
  5. NEXIUM [Concomitant]
     Dosage: UNK
     Route: 048
  6. VENTOLIN (ALBUTEROL SULFATE) [Concomitant]
     Dosage: DOSAGE FROM: METERED DOSE INHALER
     Route: 055

REACTIONS (9)
  - Paralysis [Recovered/Resolved]
  - Pain in extremity [Not Recovered/Not Resolved]
  - Nausea [Not Recovered/Not Resolved]
  - Viral infection [Unknown]
  - Malaise [Not Recovered/Not Resolved]
  - Paraesthesia [Not Recovered/Not Resolved]
  - Expired drug administered [Unknown]
  - Influenza like illness [Unknown]
  - Fatigue [Unknown]
